FAERS Safety Report 25811671 (Version 1)
Quarter: 2025Q3

REPORT INFORMATION
  Report Type: Spontaneous
  Country: US (occurrence: US)
  Receive Date: 20250917
  Receipt Date: 20250917
  Transmission Date: 20251021
  Serious: Yes (Other)
  Sender: ANI
  Company Number: US-ANIPHARMA-2025-US-042028

PATIENT
  Age: 81 Year
  Sex: Male
  Weight: 83.46 kg

DRUGS (10)
  1. METFORMIN HYDROCHLORIDE [Concomitant]
     Active Substance: METFORMIN HYDROCHLORIDE
  2. PIOGLITAZONE [Concomitant]
     Active Substance: PIOGLITAZONE
  3. VITAMIN D2 [Concomitant]
     Active Substance: ERGOCALCIFEROL
  4. CENTRUM SILVER MEN [Concomitant]
  5. LATANOPROST [Concomitant]
     Active Substance: LATANOPROST
  6. COLCHICINE [Concomitant]
     Active Substance: COLCHICINE
  7. ROSUVASTATIN CALCIUM [Concomitant]
     Active Substance: ROSUVASTATIN CALCIUM
  8. TELMISARTAN [Concomitant]
     Active Substance: TELMISARTAN
  9. AMLODIPINE BESYLATE [Concomitant]
     Active Substance: AMLODIPINE BESYLATE
  10. CORTICOTROPIN [Suspect]
     Active Substance: CORTICOTROPIN
     Indication: Gout
     Route: 058
     Dates: start: 20250708, end: 20250818

REACTIONS (6)
  - Loss of consciousness [Unknown]
  - Vision blurred [Unknown]
  - Contraindicated product administered [Recovered/Resolved]
  - Fatigue [Not Recovered/Not Resolved]
  - Product dose omission issue [Unknown]
  - Feeling abnormal [Unknown]

NARRATIVE: CASE EVENT DATE: 20250831
